FAERS Safety Report 6278998-9 (Version None)
Quarter: 2009Q3

REPORT INFORMATION
  Report Type: 
  Country: None (occurrence: None)
  Receive Date: 20090723
  Receipt Date: 20090625
  Transmission Date: 20100115
  Serious: Yes (Other)
  Sender: FDA-Public Use
  Company Number: PHEH2009US06846

PATIENT
  Sex: Female

DRUGS (2)
  1. EXJADE [Suspect]
     Indication: CHRONIC MYELOMONOCYTIC LEUKAEMIA
     Dosage: 1250 MG, QD
     Route: 048
     Dates: start: 20090618, end: 20090715
  2. EXJADE [Suspect]
     Dosage: 1250 MG, QD
     Route: 048
     Dates: end: 20090715

REACTIONS (3)
  - CONSTIPATION [None]
  - DIARRHOEA [None]
  - HERPES ZOSTER OPHTHALMIC [None]
